FAERS Safety Report 20462565 (Version 3)
Quarter: 2022Q1

REPORT INFORMATION
  Report Type: Spontaneous
  Country: PL (occurrence: PL)
  Receive Date: 20220211
  Receipt Date: 20220223
  Transmission Date: 20220424
  Serious: Yes (Hospitalization)
  Sender: FDA-Public Use
  Company Number: PL-PFIZER INC-202200235147

PATIENT
  Age: 20 Year
  Sex: Male
  Weight: 105 kg

DRUGS (4)
  1. INFLIXIMAB [Suspect]
     Active Substance: INFLIXIMAB
     Indication: Crohn^s disease
     Dosage: 5MG/KG OF BODY WEIGHT/DAILY, QD
     Route: 042
     Dates: start: 20211008, end: 20211008
  2. CORHYDRON [HYDROCORTISONE SODIUM SUCCINATE] [Concomitant]
     Dosage: UNK
     Route: 065
     Dates: start: 20211008
  3. DIAZEPAM [Concomitant]
     Active Substance: DIAZEPAM
     Dosage: UNK
     Route: 065
     Dates: start: 20211008
  4. CLEMASTINUM [CLEMASTINE FUMARATE] [Concomitant]
     Dosage: UNK
     Route: 065
     Dates: start: 20211008

REACTIONS (3)
  - Asthenia [Recovered/Resolved]
  - Erythema [Recovered/Resolved]
  - Respiratory rate decreased [Recovered/Resolved]

NARRATIVE: CASE EVENT DATE: 20211008
